FAERS Safety Report 14345921 (Version 2)
Quarter: 2018Q1

REPORT INFORMATION
  Report Type: Spontaneous
  Country: IT (occurrence: IT)
  Receive Date: 20180103
  Receipt Date: 20180124
  Transmission Date: 20180509
  Serious: Yes (Death, Other)
  Sender: FDA-Public Use
  Company Number: IT-GLAXOSMITHKLINE-IT2017200312

PATIENT
  Age: 46 Year
  Sex: Female

DRUGS (7)
  1. LAMICTAL [Suspect]
     Active Substance: LAMOTRIGINE
     Indication: POST STROKE EPILEPSY
     Dosage: 50 MG, QD
     Route: 048
     Dates: start: 20171210, end: 20171215
  2. ATORVASTATINA [Concomitant]
     Active Substance: ATORVASTATIN
     Indication: PRODUCT USED FOR UNKNOWN INDICATION
     Dosage: UNK
     Route: 065
  3. LAMICTAL [Suspect]
     Active Substance: LAMOTRIGINE
     Indication: POST STROKE EPILEPSY
     Dosage: 200 MG, QD
     Route: 048
     Dates: start: 20171215, end: 20171219
  4. DEPAKIN [Suspect]
     Active Substance: VALPROATE SODIUM
     Indication: POST STROKE EPILEPSY
     Dosage: 1500 MG, QD
     Route: 048
     Dates: start: 20151201, end: 20171219
  5. CARDIRENE [Concomitant]
     Active Substance: ASPIRIN DL-LYSINE
     Indication: PRODUCT USED FOR UNKNOWN INDICATION
     Dosage: UNK
     Route: 065
  6. CARVEDILOLO [Concomitant]
     Active Substance: CARVEDILOL
     Indication: PRODUCT USED FOR UNKNOWN INDICATION
     Dosage: UNK
     Route: 065
  7. GARDENAL [Suspect]
     Active Substance: PHENOBARBITAL
     Indication: POST STROKE EPILEPSY
     Dosage: 50 MG, QD
     Route: 048
     Dates: start: 20151201, end: 20171219

REACTIONS (2)
  - Stevens-Johnson syndrome [Fatal]
  - Hyperpyrexia [Fatal]

NARRATIVE: CASE EVENT DATE: 20171220
